FAERS Safety Report 12277294 (Version 2)
Quarter: 2016Q2

REPORT INFORMATION
  Report Type: Spontaneous
  Country: US (occurrence: US)
  Receive Date: 20160418
  Receipt Date: 20160420
  Transmission Date: 20160815
  Serious: No
  Sender: FDA-Public Use
  Company Number: US-TEVA-637402USA

PATIENT
  Age: 24 Year
  Sex: Female

DRUGS (2)
  1. ZECUITY [Suspect]
     Active Substance: SUMATRIPTAN SUCCINATE
     Route: 062
     Dates: start: 201601, end: 201601
  2. ZECUITY [Suspect]
     Active Substance: SUMATRIPTAN SUCCINATE
     Indication: HEADACHE
     Route: 062
     Dates: start: 201512, end: 201512

REACTIONS (4)
  - Application site dryness [Unknown]
  - Application site erythema [Recovered/Resolved]
  - Application site exfoliation [Unknown]
  - Application site discolouration [Unknown]

NARRATIVE: CASE EVENT DATE: 201512
